FAERS Safety Report 8010305-3 (Version None)
Quarter: 2011Q4

REPORT INFORMATION
  Report Type: 
  Country: None (occurrence: None)
  Receive Date: 20111228
  Receipt Date: 20111223
  Transmission Date: 20120403
  Serious: Yes (Hospitalization)
  Sender: FDA-Public Use
  Company Number: US-VERTEX PHARMACEUTICALS INC.-AE-2011-005466

PATIENT
  Sex: Female
  Weight: 74.456 kg

DRUGS (3)
  1. PEGASYS [Concomitant]
     Indication: HEPATITIS C
     Route: 058
     Dates: start: 20110711
  2. INCIVEK [Suspect]
     Indication: HEPATITIS C
     Dates: start: 20110711, end: 20111001
  3. RIBAVIRIN [Concomitant]
     Indication: HEPATITIS C
     Route: 048
     Dates: start: 20110711

REACTIONS (3)
  - DEHYDRATION [None]
  - PYREXIA [None]
  - URTICARIA [None]
